FAERS Safety Report 22633410 (Version 1)
Quarter: 2023Q2

REPORT INFORMATION
  Report Type: Spontaneous
  Country: CN (occurrence: CN)
  Receive Date: 20230623
  Receipt Date: 20230623
  Transmission Date: 20230722
  Serious: Yes (Disabling, Other)
  Sender: FDA-Public Use
  Company Number: CN-SA-SAC20230620001091

PATIENT
  Age: 81 Year
  Sex: Female
  Weight: 64 kg

DRUGS (2)
  1. ENOXAPARIN SODIUM [Suspect]
     Active Substance: ENOXAPARIN SODIUM
     Indication: Pneumonia
     Dosage: 6000 U, QD
     Route: 058
     Dates: start: 20230528, end: 20230528
  2. ASPIRIN [Suspect]
     Active Substance: ASPIRIN
     Indication: Stent placement
     Dosage: 0.1 G, QD
     Route: 045
     Dates: start: 20230528, end: 20230614

REACTIONS (4)
  - Productive cough [Recovering/Resolving]
  - Gastrointestinal haemorrhage [Recovering/Resolving]
  - Pallor [Recovering/Resolving]
  - Melaena [Recovering/Resolving]

NARRATIVE: CASE EVENT DATE: 20230614
